FAERS Safety Report 23990414 (Version 1)
Quarter: 2024Q2

REPORT INFORMATION
  Report Type: Spontaneous
  Country: US (occurrence: US)
  Receive Date: 20240619
  Receipt Date: 20240619
  Transmission Date: 20240716
  Serious: No
  Sender: FDA-Public Use
  Company Number: US-C. B. Fleet Co., Inc.-202307-US-002088

PATIENT
  Age: 5 Year
  Sex: Female

DRUGS (1)
  1. NIX COMPLETE MAXIMUM STRENGTH LICE ELIMINATION [Suspect]
     Active Substance: PERMETHRIN
     Indication: Lice infestation
     Dosage: USED PRODUCT TWICE FOR 10MIN EACH TIME
     Route: 061

REACTIONS (1)
  - Drug ineffective [Not Recovered/Not Resolved]
